FAERS Safety Report 11237787 (Version 1)
Quarter: 2015Q3

REPORT INFORMATION
  Report Type: Spontaneous
  Country: GB (occurrence: GB)
  Receive Date: 20150703
  Receipt Date: 20150703
  Transmission Date: 20151125
  Serious: Yes (Other)
  Sender: FDA-Public Use
  Company Number: GB-TEVA-574378ACC

PATIENT
  Age: 23 Year
  Sex: Male
  Weight: 69.85 kg

DRUGS (3)
  1. TAMOXIFEN [Suspect]
     Active Substance: TAMOXIFEN
     Dosage: 1 DOSAGE FORMS DAILY;
     Route: 048
     Dates: start: 20120415, end: 20120515
  2. TESTOSTERONE ENANTHATE. [Concomitant]
     Active Substance: TESTOSTERONE ENANTHATE
  3. IBUPROFEN. [Concomitant]
     Active Substance: IBUPROFEN

REACTIONS (2)
  - Tendon pain [Not Recovered/Not Resolved]
  - Tendon injury [Not Recovered/Not Resolved]
